FAERS Safety Report 10908398 (Version 1)
Quarter: 2015Q1

REPORT INFORMATION
  Report Type: Spontaneous
  Country: IT (occurrence: IT)
  Receive Date: 20150312
  Receipt Date: 20150312
  Transmission Date: 20150721
  Serious: Yes (Hospitalization)
  Sender: FDA-Public Use
  Company Number: IT-PFIZER INC-2015088807

PATIENT
  Age: 6 Year
  Sex: Female

DRUGS (1)
  1. CEFODOX [Suspect]
     Active Substance: CEFPODOXIME PROXETIL
     Indication: BRONCHITIS
     Dosage: 180 MG, DAILY
     Route: 048
     Dates: start: 20121127, end: 20121127

REACTIONS (1)
  - Petit mal epilepsy [Recovered/Resolved]

NARRATIVE: CASE EVENT DATE: 20121127
